FAERS Safety Report 9862835 (Version 1)
Quarter: 2014Q1

REPORT INFORMATION
  Report Type: Spontaneous
  Country: US (occurrence: US)
  Receive Date: 20140203
  Receipt Date: 20140203
  Transmission Date: 20141002
  Serious: Yes (Death)
  Sender: FDA-Public Use
  Company Number: CHPA2014US001817

PATIENT
  Age: 24 Year
  Sex: Female

DRUGS (4)
  1. DEXTROMETHORPHAN HYDROBROMIDE [Suspect]
     Dosage: UNK
     Route: 065
  2. HEROIN [Suspect]
     Dosage: UNK
     Route: 065
  3. COCAINE [Suspect]
     Dosage: UNK
     Route: 065
  4. HYDROXYZINE [Suspect]
     Dosage: UNK
     Route: 065

REACTIONS (1)
  - Intentional drug misuse [Fatal]
